FAERS Safety Report 4582399-9 (Version None)
Quarter: 2005Q1

REPORT INFORMATION
  Report Type: 
  Country: None (occurrence: None)
  Receive Date: 20050211
  Receipt Date: 20050211
  Transmission Date: 20050727
  Serious: Yes (Disabling)
  Sender: FDA-Public Use
  Company Number: None

PATIENT
  Age: 72 Year
  Sex: Female
  Weight: 73.9363 kg

DRUGS (1)
  1. TAMOXIFEN CITRATE [Suspect]
     Indication: BREAST CANCER
     Dosage: 20 MG BY MOUTH 1X
     Dates: start: 20020301

REACTIONS (3)
  - MUSCLE SPASMS [None]
  - MUSCULOSKELETAL DISORDER [None]
  - NERVE INJURY [None]
